FAERS Safety Report 9468023 (Version 4)
Quarter: 2013Q4

REPORT INFORMATION
  Report Type: Spontaneous
  Country: AR (occurrence: AR)
  Receive Date: 20130821
  Receipt Date: 20131028
  Transmission Date: 20140711
  Serious: Yes (Death, Hospitalization)
  Sender: FDA-Public Use
  Company Number: AR-PFIZER INC-2013238844

PATIENT
  Age: 67 Year
  Sex: Female
  Weight: 98 kg

DRUGS (6)
  1. XALKORI [Suspect]
     Indication: LUNG ADENOCARCINOMA METASTATIC
     Dosage: 250 MG, 2X/DAY
     Route: 048
     Dates: start: 20130808
  2. OMEPRAZOL [Concomitant]
     Dosage: 40 MG, DAILY
     Dates: start: 2010
  3. ENALAPRIL [Concomitant]
     Dosage: 20 MG, DAILY
     Dates: start: 2007
  4. LEVOTHYROXINE [Concomitant]
     Dosage: 200 MG, DAILY
     Dates: start: 201303
  5. INSULIN [Concomitant]
     Dosage: 30 UNK, UNK
     Dates: start: 2011
  6. AMIODARONE [Concomitant]
     Dosage: 200 MG, DAILY
     Dates: start: 201307

REACTIONS (2)
  - Disease progression [Fatal]
  - Lung adenocarcinoma metastatic [Fatal]
